FAERS Safety Report 15587913 (Version 3)
Quarter: 2020Q2

REPORT INFORMATION
  Report Type: Report from Study
  Country: None (occurrence: US)
  Receive Date: 20181105
  Receipt Date: 20200509
  Transmission Date: 20200713
  Serious: Yes (Hospitalization)
  Sender: FDA-Public Use
  Company Number: US-ABBVIE-18P-163-2478628-00

PATIENT
  Age: 17 Year
  Sex: Male
  Weight: 51.6 kg

DRUGS (11)
  1. MIRALAX [Concomitant]
     Active Substance: POLYETHYLENE GLYCOL 3350
     Indication: CONSTIPATION
     Dosage: 17 G BID PRN
     Route: 048
     Dates: start: 20170302
  2. TRIAMCINOLONE [Concomitant]
     Active Substance: TRIAMCINOLONE
     Indication: EXCESSIVE GRANULATION TISSUE
     Dosage: 1 APPLICATION TID PRN
     Route: 048
     Dates: start: 20170714
  3. HUMIRA [Suspect]
     Active Substance: ADALIMUMAB
     Indication: CROHN^S DISEASE
     Route: 058
     Dates: start: 20170321, end: 20180831
  4. ACETAMINOPHEN. [Concomitant]
     Active Substance: ACETAMINOPHEN
     Indication: PAIN
     Route: 048
     Dates: start: 20170427
  5. CHOLECALCIFEROL [Concomitant]
     Active Substance: CHOLECALCIFEROL
     Indication: VITAMIN D DECREASED
  6. PRENATAL PLUS IRON [Concomitant]
     Active Substance: .ALPHA.-TOCOPHEROL ACETATE, DL-\.BETA.-CAROTENE\ASCORBIC ACID\CALCIUM CARBONATE\CHOLECALCIFEROL\CUPRIC OXIDE\CYANOCOBALAMIN\FERROUS FUMARATE\FOLIC ACID\NIACINAMIDE\PYRIDOXINE HYDROCHLORIDE\RIBOFLAVIN\THIAMINE MONONITRATE\VITAMIN A ACETATE\ZINC OXIDE
     Indication: HYPOVITAMINOSIS
  7. OSMOLITE [Concomitant]
     Indication: NUTRITIONAL SUPPLEMENTATION
     Dosage: 4 CANS DAILY VIA  GASTROSTOMY TUBE
     Route: 050
     Dates: start: 2018, end: 20180320
  8. 6-MP [Suspect]
     Active Substance: MERCAPTOPURINE
     Indication: CROHN^S DISEASE
     Route: 048
     Dates: start: 20180131, end: 20180628
  9. PRENATAL PLUS IRON [Concomitant]
     Active Substance: .ALPHA.-TOCOPHEROL ACETATE, DL-\.BETA.-CAROTENE\ASCORBIC ACID\CALCIUM CARBONATE\CHOLECALCIFEROL\CUPRIC OXIDE\CYANOCOBALAMIN\FERROUS FUMARATE\FOLIC ACID\NIACINAMIDE\PYRIDOXINE HYDROCHLORIDE\RIBOFLAVIN\THIAMINE MONONITRATE\VITAMIN A ACETATE\ZINC OXIDE
     Indication: MINERAL DEFICIENCY
     Route: 048
     Dates: start: 20170226
  10. CHOLECALCIFEROL [Concomitant]
     Active Substance: CHOLECALCIFEROL
     Indication: VITAMIN SUPPLEMENTATION
     Route: 048
     Dates: start: 20170228
  11. OSMOLITE [Concomitant]
     Dosage: 2 CANS DAILY VIA  GASTROSTOMY TUBE
     Route: 050
     Dates: start: 20180321

REACTIONS (1)
  - Malnutrition [Recovered/Resolved]

NARRATIVE: CASE EVENT DATE: 201808
